FAERS Safety Report 5014720-1 (Version None)
Quarter: 2006Q2

REPORT INFORMATION
  Report Type: 
  Country: None (occurrence: None)
  Receive Date: 20060531
  Receipt Date: 20060526
  Transmission Date: 20061013
  Serious: Yes (Other)
  Sender: FDA-Public Use
  Company Number: US-GLAXOSMITHKLINE-A0607297A

PATIENT
  Sex: Male

DRUGS (3)
  1. REQUIP [Suspect]
     Indication: PARKINSON'S DISEASE
     Dosage: 24MG PER DAY
     Route: 048
  2. STALEVO 100 [Concomitant]
  3. AMANTADINE HCL [Concomitant]
     Indication: DYSKINESIA

REACTIONS (4)
  - AGGRESSION [None]
  - DISSOCIATIVE IDENTITY DISORDER [None]
  - IMPULSIVE BEHAVIOUR [None]
  - SELF INJURIOUS BEHAVIOUR [None]
